FAERS Safety Report 10345783 (Version 1)
Quarter: 2014Q3

REPORT INFORMATION
  Report Type: Spontaneous
  Country: FI (occurrence: FI)
  Receive Date: 20140728
  Receipt Date: 20140728
  Transmission Date: 20150326
  Serious: Yes (Hospitalization)
  Sender: FDA-Public Use
  Company Number: FI-TEVA-494738ISR

PATIENT
  Sex: Male

DRUGS (5)
  1. METOPROLOL [Concomitant]
     Active Substance: METOPROLOL
     Dosage: 23.7 MILLIGRAM DAILY;
     Route: 048
     Dates: start: 20120125
  2. FELODIPINE. [Suspect]
     Active Substance: FELODIPINE
     Dosage: 5 MILLIGRAM DAILY;
     Route: 048
     Dates: start: 20131114
  3. LOSATRIX 100MG [Suspect]
     Active Substance: LOSARTAN POTASSIUM
     Dosage: 100 MILLIGRAM DAILY;
     Route: 048
     Dates: start: 20100915, end: 20131114
  4. EXFORGE [Suspect]
     Active Substance: AMLODIPINE BESYLATE\VALSARTAN
     Dosage: 1 TABLET DAILY;
     Route: 048
     Dates: start: 20140505, end: 20140516
  5. MAREVAN FORTE [Concomitant]
     Route: 048
     Dates: start: 20100525

REACTIONS (5)
  - Malaise [Recovered/Resolved]
  - Aerophagia [Recovered/Resolved]
  - Cold sweat [Recovered/Resolved]
  - Dysarthria [Recovered/Resolved]
  - Photopsia [Recovered/Resolved]
